FAERS Safety Report 4714948-1 (Version None)
Quarter: 2005Q3

REPORT INFORMATION
  Report Type: 
  Country: None (occurrence: None)
  Receive Date: 20050715
  Receipt Date: 20040417
  Transmission Date: 20060218
  Serious: Yes (Hospitalization, Other)
  Sender: FDA-Public Use
  Company Number: BE-JNJFOC-20040304757

PATIENT
  Sex: Female

DRUGS (5)
  1. PROPULSID [Suspect]
     Route: 065
  2. PROPULSID [Suspect]
     Route: 065
  3. PROPULSID [Suspect]
     Route: 065
  4. PROPULSID [Suspect]
     Route: 065
  5. PROPULSID [Suspect]
     Route: 065

REACTIONS (1)
  - OESOPHAGOGASTRIC FUNDOPLASTY [None]
